FAERS Safety Report 21892933 (Version 1)
Quarter: 2023Q1

REPORT INFORMATION
  Report Type: Report from Study
  Country: US (occurrence: US)
  Receive Date: 20230120
  Receipt Date: 20230120
  Transmission Date: 20230418
  Serious: Yes (Other)
  Sender: FDA-Public Use
  Company Number: US-JAZZ-2022-US-036608

PATIENT
  Sex: Female

DRUGS (1)
  1. XYWAV [Suspect]
     Active Substance: CALCIUM OXYBATE\MAGNESIUM OXYBATE\POTASSIUM OXYBATE\SODIUM OXYBATE
     Indication: Product used for unknown indication
     Dosage: 6 GRAM ONCE NIGHTLY

REACTIONS (5)
  - Autoimmune thyroiditis [Unknown]
  - Sinus headache [Unknown]
  - Bronchitis [Unknown]
  - Tremor [Unknown]
  - Arthralgia [Unknown]

NARRATIVE: CASE EVENT DATE: 20221128
